FAERS Safety Report 9530963 (Version 1)
Quarter: 2013Q3

REPORT INFORMATION
  Report Type: Spontaneous
  Country: US (occurrence: US)
  Receive Date: 20130918
  Receipt Date: 20130918
  Transmission Date: 20140515
  Serious: Yes (Hospitalization)
  Sender: FDA-Public Use
  Company Number: US-BAYER-2013-110466

PATIENT
  Age: 31 Year
  Sex: Female

DRUGS (1)
  1. YASMIN [Suspect]

REACTIONS (5)
  - Superior sagittal sinus thrombosis [None]
  - Jugular vein thrombosis [None]
  - Transverse sinus thrombosis [None]
  - Transverse sinus thrombosis [None]
  - Intracranial venous sinus thrombosis [None]
